FAERS Safety Report 14012132 (Version 1)
Quarter: 2017Q3

REPORT INFORMATION
  Report Type: Spontaneous
  Country: FR (occurrence: FR)
  Receive Date: 20170926
  Receipt Date: 20170926
  Transmission Date: 20171128
  Serious: Yes (Disabling)
  Sender: FDA-Public Use
  Company Number: FR-MERCK KGAA-2027720

PATIENT
  Age: 5 Decade
  Sex: Male

DRUGS (1)
  1. NOVOTHYROX [Suspect]
     Active Substance: LEVOTHYROXINE SODIUM
     Indication: POST PROCEDURAL HYPOTHYROIDISM
     Dates: start: 20170501

REACTIONS (11)
  - Memory impairment [Recovering/Resolving]
  - Renal pain [Recovering/Resolving]
  - Heart rate increased [Recovering/Resolving]
  - Fatigue [Recovering/Resolving]
  - Blood pressure increased [Recovering/Resolving]
  - Arthralgia [Recovering/Resolving]
  - Aggression [Recovering/Resolving]
  - Impaired work ability [Recovering/Resolving]
  - Depressed mood [Recovering/Resolving]
  - Hepatic pain [Recovering/Resolving]
  - Headache [Recovering/Resolving]

NARRATIVE: CASE EVENT DATE: 20170504
